FAERS Safety Report 4545011-0 (Version None)
Quarter: 2005Q1

REPORT INFORMATION
  Report Type: 
  Country: None (occurrence: None)
  Receive Date: 20050105
  Receipt Date: 20041208
  Transmission Date: 20050727
  Serious: Yes (Hospitalization)
  Sender: FDA-Public Use
  Company Number: JP-GLAXOSMITHKLINE-B0360055A

PATIENT
  Age: 64 Year
  Sex: Female

DRUGS (17)
  1. PAXIL [Suspect]
     Indication: DEPRESSION
     Dosage: 20MG PER DAY
     Route: 048
     Dates: start: 20020601
  2. TOFRANIL [Concomitant]
     Indication: SENSORY DISTURBANCE
     Dosage: 25MG PER DAY
     Route: 048
     Dates: start: 20040604, end: 20041206
  3. ASPIRIN [Concomitant]
     Indication: ANGINA PECTORIS
     Dosage: 100MG PER DAY
     Route: 048
  4. SIGMART [Concomitant]
     Indication: ANGINA PECTORIS
     Dosage: 15MG PER DAY
     Route: 048
     Dates: end: 20041206
  5. GAMOFA [Concomitant]
     Route: 065
  6. MYSLEE [Concomitant]
     Route: 048
  7. CALFINA [Concomitant]
     Dosage: .5MG PER DAY
     Route: 048
     Dates: end: 20041206
  8. OMEPRAL [Concomitant]
     Dosage: 20MG PER DAY
     Route: 048
  9. CYANOCOBALAMIN [Concomitant]
     Dosage: 1500MCG PER DAY
     Dates: end: 20041206
  10. CALTAN [Concomitant]
     Route: 048
     Dates: end: 20041206
  11. ANPLAG [Concomitant]
     Indication: ATHEROSCLEROSIS OBLITERANS
     Dosage: 300MG PER DAY
     Route: 048
     Dates: end: 20041206
  12. SELBEX [Concomitant]
     Indication: GASTRITIS
     Dosage: 150MG PER DAY
     Route: 048
     Dates: end: 20041206
  13. SHAKUYAKU-KANZO-TO [Concomitant]
     Dosage: 7.5MG PER DAY
     Route: 048
     Dates: end: 20041206
  14. MYORELARK [Concomitant]
     Route: 048
     Dates: end: 20041206
  15. RISUMIC [Concomitant]
  16. FLUNITRAZEPAM [Concomitant]
     Indication: INSOMNIA
     Dosage: 1MG PER DAY
     Route: 048
     Dates: end: 20041206
  17. PERIACTIN [Concomitant]
     Dosage: 24MG PER DAY
     Route: 048
     Dates: start: 20041208, end: 20041209

REACTIONS (8)
  - ALANINE AMINOTRANSFERASE INCREASED [None]
  - ASPARTATE AMINOTRANSFERASE INCREASED [None]
  - DEPRESSED LEVEL OF CONSCIOUSNESS [None]
  - DISORIENTATION [None]
  - HALLUCINATION, VISUAL [None]
  - LIVER DISORDER [None]
  - MYOCLONUS [None]
  - SEROTONIN SYNDROME [None]
